FAERS Safety Report 15656954 (Version 1)
Quarter: 2018Q4

REPORT INFORMATION
  Report Type: Spontaneous
  Country: US (occurrence: US)
  Receive Date: 20181126
  Receipt Date: 20181126
  Transmission Date: 20190205
  Serious: No
  Sender: FDA-Public Use
  Company Number: None

PATIENT
  Age: 47 Year
  Sex: Female
  Weight: 66.15 kg

DRUGS (1)
  1. MACROBID 100 MG GENERIC [Suspect]
     Active Substance: NITROFURANTOIN
     Indication: URINARY TRACT INFECTION
     Dosage: ?          QUANTITY:1 CAPSULE(S);?
     Route: 048
     Dates: start: 20181015, end: 20181019

REACTIONS (4)
  - Treatment failure [None]
  - Product substitution issue [None]
  - Sciatica [None]
  - Arthralgia [None]

NARRATIVE: CASE EVENT DATE: 20181015
